FAERS Safety Report 5224716-2 (Version None)
Quarter: 2007Q1

REPORT INFORMATION
  Report Type: 
  Country: None (occurrence: None)
  Receive Date: 20070131
  Receipt Date: 20070124
  Transmission Date: 20070707
  Serious: Yes (Hospitalization)
  Sender: FDA-Public Use
  Company Number: US-JNJFOC-20061102172

PATIENT
  Sex: Female
  Weight: 64.41 kg

DRUGS (8)
  1. REMICADE [Suspect]
     Indication: RHEUMATOID ARTHRITIS
     Route: 042
  2. HYDROCODONE BITARTRATE [Concomitant]
  3. METHOTREXATE [Concomitant]
  4. FOSAMAX [Concomitant]
  5. FOLIC ACID [Concomitant]
  6. PROTONIX [Concomitant]
  7. HYZAAR [Concomitant]
     Dosage: DOSE IS 100/25 DAILY
  8. PREDNISONE [Concomitant]
     Dosage: DOSE 20 MG-5MG DAILY

REACTIONS (1)
  - PULMONARY TUBERCULOSIS [None]
